FAERS Safety Report 9201537 (Version 5)
Quarter: 2013Q4

REPORT INFORMATION
  Report Type: Spontaneous
  Country: US (occurrence: US)
  Receive Date: 20130401
  Receipt Date: 20131126
  Transmission Date: 20140711
  Serious: Yes (Other)
  Sender: FDA-Public Use
  Company Number: US-PFIZER INC-2013101689

PATIENT
  Age: 72 Year
  Sex: Female

DRUGS (8)
  1. LIPITOR [Suspect]
     Indication: LOW DENSITY LIPOPROTEIN INCREASED
     Dosage: UNK
     Route: 048
     Dates: start: 1999
  2. LIPITOR [Suspect]
     Indication: CARDIOVASCULAR EVENT PROPHYLAXIS
     Dosage: 10 MG, 1X/DAY
     Route: 048
     Dates: start: 19991222
  3. LIPITOR [Suspect]
     Dosage: 20 MG, 1X/DAY, AT BEDTIME
     Route: 048
     Dates: start: 20010723
  4. LIPITOR [Suspect]
     Dosage: 80 MG, 1X/DAY, AT BEDTIME
     Route: 048
     Dates: start: 20090609
  5. NORVASC [Concomitant]
     Indication: HYPERTENSION
     Dosage: 10 MG, 1X/DAY
     Route: 048
  6. LODRANE [Concomitant]
     Dosage: UNK
     Route: 048
  7. LORATADINE [Concomitant]
     Dosage: 10 MG, DAILY
     Route: 048
  8. PONARIS [Concomitant]
     Dosage: UNK

REACTIONS (1)
  - Type 2 diabetes mellitus [Unknown]
